FAERS Safety Report 10060280 (Version 1)
Quarter: 2014Q2

REPORT INFORMATION
  Report Type: Spontaneous
  Country: BE (occurrence: BE)
  Receive Date: 20140404
  Receipt Date: 20140404
  Transmission Date: 20141212
  Serious: Yes (Death)
  Sender: FDA-Public Use
  Company Number: BE-JNJFOC-20140401686

PATIENT
  Age: 82 Year
  Sex: Female
  Weight: 61 kg

DRUGS (6)
  1. XARELTO [Suspect]
     Indication: ATRIAL FIBRILLATION
     Route: 048
     Dates: start: 20130329
  2. XARELTO [Suspect]
     Indication: CEREBROVASCULAR ACCIDENT PROPHYLAXIS
     Route: 048
     Dates: start: 20130329
  3. SOTALEX [Concomitant]
     Indication: ATRIAL FIBRILLATION
     Route: 048
  4. ATORVASTATIN [Concomitant]
     Route: 048
  5. LORAZEPAM [Concomitant]
     Indication: SLEEP DISORDER
     Route: 048
  6. SIPRALEXA [Concomitant]
     Indication: DEPRESSION
     Route: 048

REACTIONS (3)
  - Cerebral haemorrhage [Fatal]
  - Brain midline shift [Fatal]
  - Stupor [Unknown]
